FAERS Safety Report 7010886-2 (Version None)
Quarter: 2010Q3

REPORT INFORMATION
  Report Type: 
  Country: None (occurrence: None)
  Receive Date: 20100923
  Receipt Date: 20100923
  Transmission Date: 20110219
  Serious: Yes (Other)
  Sender: FDA-Public Use
  Company Number: None

PATIENT
  Age: 41 Year
  Sex: Female
  Weight: 70.7611 kg

DRUGS (1)
  1. KAPIDEX 60MG TAKEDA PHARMACEUTICAL [Suspect]
     Indication: DYSPEPSIA
     Dosage: 60MG 1 X DAY PO
     Route: 048
     Dates: start: 20100406, end: 20100413

REACTIONS (4)
  - ANXIETY [None]
  - DEPRESSION [None]
  - INSOMNIA [None]
  - MORBID THOUGHTS [None]
